FAERS Safety Report 18997547 (Version 1)
Quarter: 2021Q1

REPORT INFORMATION
  Report Type: Spontaneous
  Country: GR (occurrence: GR)
  Receive Date: 20210311
  Receipt Date: 20210311
  Transmission Date: 20210420
  Serious: Yes (Life-Threatening)
  Sender: FDA-Public Use
  Company Number: GR-BAYER-2021-090970

PATIENT
  Age: 46 Year
  Weight: 60 kg

DRUGS (1)
  1. GADOVIST [Suspect]
     Active Substance: GADOBUTROL
     Indication: MAGNETIC RESONANCE IMAGING
     Route: 042
     Dates: start: 20210202, end: 20210202

REACTIONS (5)
  - Hypotension [Recovered/Resolved]
  - Asthenia [Recovered/Resolved]
  - Bronchospasm [Recovered/Resolved]
  - Dizziness [Recovered/Resolved]
  - Cough [Recovered/Resolved]

NARRATIVE: CASE EVENT DATE: 20210202
